FAERS Safety Report 5341093-7 (Version None)
Quarter: 2007Q2

REPORT INFORMATION
  Report Type: 
  Country: None (occurrence: None)
  Receive Date: 20070405
  Receipt Date: 20061109
  Transmission Date: 20071010
  Serious: No
  Sender: FDA-Public Use
  Company Number: US200609006391

PATIENT
  Age: 27 Year
  Sex: Male

DRUGS (3)
  1. CYMBALTA [Suspect]
     Indication: DEPRESSION
     Dosage: 120 MG
     Dates: start: 20060706
  2. METHADONE HCL [Concomitant]
  3. ASPIRIN [Concomitant]

REACTIONS (2)
  - DRUG SCREEN POSITIVE [None]
  - INSOMNIA [None]
